FAERS Safety Report 24940598 (Version 2)
Quarter: 2025Q1

REPORT INFORMATION
  Report Type: Spontaneous
  Country: US (occurrence: US)
  Receive Date: 20250207
  Receipt Date: 20250318
  Transmission Date: 20250408
  Serious: Yes (Other)
  Sender: BRISTOL-MYERS SQUIBB COMPANY
  Company Number: US-BRISTOL-MYERS SQUIBB COMPANY-2025-017792

PATIENT
  Age: 84 Year
  Sex: Female
  Weight: 98.43 kg

DRUGS (2)
  1. ELIQUIS [Suspect]
     Active Substance: APIXABAN
     Indication: Product used for unknown indication
  2. IBRANCE [Suspect]
     Active Substance: PALBOCICLIB
     Indication: Product used for unknown indication
     Route: 048
     Dates: start: 20241027

REACTIONS (8)
  - Muscle spasms [Not Recovered/Not Resolved]
  - Epistaxis [Not Recovered/Not Resolved]
  - Full blood count decreased [Not Recovered/Not Resolved]
  - Urinary tract infection [Not Recovered/Not Resolved]
  - Bladder disorder [Not Recovered/Not Resolved]
  - Fluid retention [Not Recovered/Not Resolved]
  - Pruritus [Not Recovered/Not Resolved]
  - Breast cancer metastatic [Unknown]

NARRATIVE: CASE EVENT DATE: 20241027
